FAERS Safety Report 13504641 (Version 1)
Quarter: 2017Q2

REPORT INFORMATION
  Report Type: Spontaneous
  Country: US (occurrence: US)
  Receive Date: 20170502
  Receipt Date: 20170502
  Transmission Date: 20170830
  Serious: No
  Sender: FDA-Public Use
  Company Number: US-IMPAX LABORATORIES, INC-2017-IPXL-00961

PATIENT
  Age: 72 Year
  Sex: Male
  Weight: 69 kg

DRUGS (3)
  1. RYTARY [Suspect]
     Active Substance: CARBIDOPA\LEVODOPA
     Dosage: 36.25/145 MG, 1 DF, 3 /DAY
     Route: 048
     Dates: start: 20170330, end: 20170330
  2. RYTARY [Suspect]
     Active Substance: CARBIDOPA\LEVODOPA
     Dosage: 23.75/95 MG, 1 DF, 3 /DAY,
     Route: 048
     Dates: start: 20170331
  3. RYTARY [Suspect]
     Active Substance: CARBIDOPA\LEVODOPA
     Indication: PARKINSON^S DISEASE
     Dosage: 23.75/95 MG, 1 DF, 3 /DAY
     Route: 048
     Dates: start: 20170323, end: 201703

REACTIONS (6)
  - Dysarthria [Recovered/Resolved]
  - Drug ineffective [Unknown]
  - Asthenia [Recovered/Resolved]
  - Sluggishness [Recovered/Resolved]
  - Dizziness [Recovered/Resolved]
  - Gait disturbance [Recovered/Resolved]

NARRATIVE: CASE EVENT DATE: 201703
